FAERS Safety Report 16233943 (Version 1)
Quarter: 2019Q2

REPORT INFORMATION
  Report Type: Spontaneous
  Country: US (occurrence: US)
  Receive Date: 20190424
  Receipt Date: 20190424
  Transmission Date: 20190711
  Serious: No
  Sender: FDA-Public Use
  Company Number: US-SA-2019SA110143

PATIENT
  Age: 62 Year
  Sex: Female

DRUGS (1)
  1. LANTUS SOLOSTAR [Suspect]
     Active Substance: INSULIN GLARGINE
     Indication: TYPE 2 DIABETES MELLITUS
     Dosage: 72 U, QD
     Route: 065

REACTIONS (7)
  - Peripheral swelling [Unknown]
  - Somnolence [Unknown]
  - Paraesthesia [Unknown]
  - Arthralgia [Unknown]
  - Blood glucose increased [Unknown]
  - Trigger finger [Unknown]
  - Burning sensation [Unknown]
